FAERS Safety Report 15854083 (Version 1)
Quarter: 2019Q1

REPORT INFORMATION
  Report Type: Spontaneous
  Country: US (occurrence: US)
  Receive Date: 20190121
  Receipt Date: 20190121
  Transmission Date: 20190417
  Serious: Yes (Disabling)
  Sender: FDA-Public Use
  Company Number: None

PATIENT
  Age: 75 Year
  Sex: Female
  Weight: 40.5 kg

DRUGS (12)
  1. LISINIPRIL [Concomitant]
     Active Substance: LISINOPRIL
  2. VITAMIN C [Concomitant]
     Active Substance: ASCORBIC ACID
  3. VITAMIN D [Concomitant]
     Active Substance: CHOLECALCIFEROL
  4. COSMOS STUDY [Concomitant]
  5. LEVLOTHYROXINE [Concomitant]
  6. OMEGA 3 [Concomitant]
     Active Substance: OMEGA-3 FATTY ACIDS
  7. MAGNESIUM [Concomitant]
     Active Substance: MAGNESIUM
  8. TRADJENTA [Suspect]
     Active Substance: LINAGLIPTIN
     Indication: DIABETES MELLITUS
     Dosage: ?          QUANTITY:1 TABLET(S);?
     Route: 048
     Dates: start: 20170614, end: 20181126
  9. PIROXICAM. [Concomitant]
     Active Substance: PIROXICAM
  10. VITAMIN E [Concomitant]
     Active Substance: .ALPHA.-TOCOPHEROL
  11. ROSUVASTATIN. [Concomitant]
     Active Substance: ROSUVASTATIN
  12. CALCIUM [Concomitant]
     Active Substance: CALCIUM

REACTIONS (7)
  - Burning sensation [None]
  - Myalgia [None]
  - Peripheral swelling [None]
  - Blood glucose increased [None]
  - Drug effect decreased [None]
  - Erythema [None]
  - Arthralgia [None]

NARRATIVE: CASE EVENT DATE: 20170619
